FAERS Safety Report 12438425 (Version 3)
Quarter: 2016Q2

REPORT INFORMATION
  Report Type: Spontaneous
  Country: US (occurrence: US)
  Receive Date: 20160606
  Receipt Date: 20160628
  Transmission Date: 20160815
  Serious: Yes (Other)
  Sender: FDA-Public Use
  Company Number: US-GLAXOSMITHKLINE-US2016079477

PATIENT
  Sex: Female
  Weight: 52.61 kg

DRUGS (20)
  1. BENLYSTA [Suspect]
     Active Substance: BELIMUMAB
     Indication: SYSTEMIC LUPUS ERYTHEMATOSUS
     Dosage: 520 MG, CYC
     Route: 042
     Dates: start: 20121120
  2. TOBRAMYCIN EYE DROPS [Concomitant]
  3. IMITREX [Concomitant]
     Active Substance: SUMATRIPTAN SUCCINATE
  4. COREG [Concomitant]
     Active Substance: CARVEDILOL
  5. ZANAFLEX [Concomitant]
     Active Substance: TIZANIDINE HYDROCHLORIDE
  6. EXCEDRIN (USA) [Concomitant]
  7. INDOMETHACIN. [Concomitant]
     Active Substance: INDOMETHACIN
  8. DHEA [Concomitant]
     Active Substance: PRASTERONE
  9. ENTOCORT EC [Concomitant]
     Active Substance: BUDESONIDE
  10. ZANTAC [Concomitant]
     Active Substance: RANITIDINE HYDROCHLORIDE
  11. LISINOPRIL. [Concomitant]
     Active Substance: LISINOPRIL
  12. PREDNISONE. [Concomitant]
     Active Substance: PREDNISONE
  13. GABAPENTIN. [Concomitant]
     Active Substance: GABAPENTIN
  14. ULTRACET [Concomitant]
     Active Substance: ACETAMINOPHEN\TRAMADOL HYDROCHLORIDE
  15. VERAPAMIL [Concomitant]
     Active Substance: VERAPAMIL HYDROCHLORIDE
  16. LASIX [Concomitant]
     Active Substance: FUROSEMIDE
  17. NORVASC [Concomitant]
     Active Substance: AMLODIPINE BESYLATE
  18. RELAFEN [Concomitant]
     Active Substance: NABUMETONE
  19. ONDANSETRON [Concomitant]
     Active Substance: ONDANSETRON
  20. PERCOCET [Concomitant]
     Active Substance: ACETAMINOPHEN\OXYCODONE HYDROCHLORIDE

REACTIONS (5)
  - Cataract operation [Recovered/Resolved]
  - Post procedural complication [Recovered/Resolved]
  - Lenticular opacities [Recovered/Resolved]
  - Blindness [Not Recovered/Not Resolved]
  - Eye laser surgery [Recovered/Resolved]
